FAERS Safety Report 16244986 (Version 1)
Quarter: 2019Q2

REPORT INFORMATION
  Report Type: Other
  Country: US (occurrence: TR)
  Receive Date: 20190426
  Receipt Date: 20190426
  Transmission Date: 20190711
  Serious: Yes (Hospitalization)
  Sender: FDA-Public Use
  Company Number: TR-BRECKENRIDGE PHARMACEUTICAL, INC.-2066286

PATIENT
  Age: 63 Year
  Sex: Female

DRUGS (2)
  1. PREMIXED INSULIN [Concomitant]
  2. DULOXETINE. [Suspect]
     Active Substance: DULOXETINE
     Indication: MAJOR DEPRESSION
     Route: 048

REACTIONS (2)
  - Uraemic encephalopathy [None]
  - Acute kidney injury [None]
